FAERS Safety Report 17802507 (Version 1)
Quarter: 2020Q2

REPORT INFORMATION
  Report Type: Spontaneous
  Country: US (occurrence: US)
  Receive Date: 20200519
  Receipt Date: 20200519
  Transmission Date: 20200714
  Serious: No
  Sender: FDA-Public Use
  Company Number: US-NOVEN PHARMACEUTICALS, INC.-US2020000142

PATIENT

DRUGS (3)
  1. DAYTRANA [Suspect]
     Active Substance: METHYLPHENIDATE
     Dosage: USING 20 MG AND HALF CUT PATCH OF 20 MG TO MAKE TOTAL DOSE OF 30 MG, UNKNOWN
     Route: 062
     Dates: start: 20200219
  2. COTEMPLA XR-ODT [Concomitant]
     Active Substance: METHYLPHENIDATE
     Indication: ATTENTION DEFICIT HYPERACTIVITY DISORDER
     Dosage: 25 MG, UNK
     Dates: start: 2019
  3. DAYTRANA [Suspect]
     Active Substance: METHYLPHENIDATE
     Indication: ATTENTION DEFICIT HYPERACTIVITY DISORDER
     Dosage: 20 MG
     Route: 062
     Dates: start: 20200215, end: 20200216

REACTIONS (4)
  - Product quality issue [Unknown]
  - Therapeutic product ineffective [Unknown]
  - Product administration error [Unknown]
  - Off label use [Not Recovered/Not Resolved]

NARRATIVE: CASE EVENT DATE: 20200215
